FAERS Safety Report 16105559 (Version 1)
Quarter: 2019Q2

REPORT INFORMATION
  Report Type: Spontaneous
  Country: US (occurrence: US)
  Receive Date: 20190321
  Receipt Date: 20190321
  Transmission Date: 20190711
  Serious: Yes (Life-Threatening, Hospitalization)
  Sender: FDA-Public Use
  Company Number: None

PATIENT
  Age: 63 Year
  Sex: Male
  Weight: 81 kg

DRUGS (9)
  1. NUPLAZID [Suspect]
     Active Substance: PIMAVANSERIN TARTRATE
     Indication: HALLUCINATION
     Dosage: ?          QUANTITY:1 CAPSULE(S);?
     Route: 048
     Dates: start: 20190227, end: 20190228
  2. STALEVO [Concomitant]
     Active Substance: CARBIDOPA\ENTACAPONE\LEVODOPA
  3. SENNACOT COLASE [Concomitant]
  4. VESACARE [Concomitant]
  5. AMANTADINE. [Concomitant]
     Active Substance: AMANTADINE HYDROCHLORIDE
  6. CARBIDOPA/LEVODOPA [Concomitant]
     Active Substance: CARBIDOPA\LEVODOPA
  7. NORTHERA [Concomitant]
     Active Substance: DROXIDOPA
  8. MULTI VITAMIN [Concomitant]
     Active Substance: VITAMINS
  9. METFORMIN [Concomitant]
     Active Substance: METFORMIN HYDROCHLORIDE

REACTIONS (7)
  - Parkinson^s disease [None]
  - Heart rate decreased [None]
  - Abnormal behaviour [None]
  - Oxygen saturation decreased [None]
  - Intentional self-injury [None]
  - Body temperature decreased [None]
  - Arrhythmia [None]

NARRATIVE: CASE EVENT DATE: 20190228
